FAERS Safety Report 5158202-5 (Version None)
Quarter: 2006Q4

REPORT INFORMATION
  Report Type: 
  Country: None (occurrence: None)
  Receive Date: 20061121
  Receipt Date: 20061121
  Transmission Date: 20070319
  Serious: Yes (Hospitalization)
  Sender: FDA-Public Use
  Company Number: None

PATIENT
  Sex: Male
  Weight: 72 kg

DRUGS (16)
  1. ARANESP [Suspect]
     Indication: ANAEMIA
     Dosage: 500 MCG SQ 1XM
     Route: 058
     Dates: start: 20060522, end: 20060712
  2. EMCYT [Suspect]
     Indication: PROSTATE CANCER METASTATIC
     Dosage: 840 MG PO X 3 DAYS
     Route: 048
     Dates: start: 20060627, end: 20060629
  3. TAXOTERE [Suspect]
     Indication: PROSTATE CANCER METASTATIC
     Dosage: 75 MG/M2 IV Q 3 W
     Route: 042
     Dates: start: 20060509, end: 20060627
  4. METFORMIN HCL [Concomitant]
  5. VICODIN [Concomitant]
  6. CREON [Concomitant]
  7. MULTI-VITAMIN [Concomitant]
  8. CELEXA [Concomitant]
  9. ASCORBIC ACID [Concomitant]
  10. ASPIRIN [Concomitant]
  11. NEXIUM [Concomitant]
  12. VESICARE [Concomitant]
  13. DEXAMETHASONE [Concomitant]
  14. SENOKOT [Concomitant]
  15. MILK OF MAGNESIA [Concomitant]
  16. VYTORIN [Concomitant]

REACTIONS (8)
  - CELLULITIS STREPTOCOCCAL [None]
  - DIZZINESS [None]
  - DYSPNOEA [None]
  - HEADACHE [None]
  - PANCYTOPENIA [None]
  - STREPTOCOCCAL SEPSIS [None]
  - SWELLING FACE [None]
  - TREMOR [None]
